FAERS Safety Report 15449202 (Version 1)
Quarter: 2018Q3

REPORT INFORMATION
  Report Type: Report from Study
  Country: US (occurrence: US)
  Receive Date: 20180930
  Receipt Date: 20180930
  Transmission Date: 20181010
  Serious: Yes (Other)
  Sender: FDA-Public Use
  Company Number: US-BRISTOL-MYERS SQUIBB COMPANY-BMS-2018-088471

PATIENT
  Sex: Female

DRUGS (5)
  1. NIVOLUMAB [Suspect]
     Active Substance: NIVOLUMAB
     Indication: MALIGNANT MELANOMA
     Dosage: UNK, Q2WK
     Route: 042
  2. ENSURE [Concomitant]
     Active Substance: AMINO ACIDS\DEXTROSE\ELECTROLYTES NOS\SOYBEAN OIL\VITAMINS
     Indication: PRODUCT USED FOR UNKNOWN INDICATION
     Route: 065
  3. ONDANSETRON [Concomitant]
     Active Substance: ONDANSETRON
     Indication: PRODUCT USED FOR UNKNOWN INDICATION
     Route: 065
  4. AQUAPHOR (XIPAMIDE) [Concomitant]
     Active Substance: XIPAMIDE
     Indication: PRODUCT USED FOR UNKNOWN INDICATION
     Route: 065
  5. IMODIUM [Concomitant]
     Active Substance: LOPERAMIDE HYDROCHLORIDE
     Indication: PRODUCT USED FOR UNKNOWN INDICATION
     Route: 065

REACTIONS (15)
  - Pyrexia [Recovering/Resolving]
  - Arthralgia [Recovering/Resolving]
  - Mastication disorder [Recovering/Resolving]
  - Weight decreased [Recovering/Resolving]
  - Nausea [Recovering/Resolving]
  - Aphasia [Recovering/Resolving]
  - Dyspnoea exertional [Recovering/Resolving]
  - Productive cough [Recovering/Resolving]
  - Chest discomfort [Recovering/Resolving]
  - Rash pruritic [Recovering/Resolving]
  - Fatigue [Recovering/Resolving]
  - Device related infection [Recovering/Resolving]
  - Diarrhoea [Recovering/Resolving]
  - Muscle spasms [Recovering/Resolving]
  - Decreased appetite [Recovering/Resolving]
